FAERS Safety Report 12569240 (Version 1)
Quarter: 2016Q3

REPORT INFORMATION
  Report Type: Report from Study
  Country: US (occurrence: US)
  Receive Date: 20160719
  Receipt Date: 20160719
  Transmission Date: 20161109
  Serious: Yes (Other)
  Sender: FDA-Public Use
  Company Number: US-ROCHE-1795872

PATIENT
  Age: 70 Year
  Sex: Male
  Weight: 91 kg

DRUGS (4)
  1. VISMODEGIB [Suspect]
     Active Substance: VISMODEGIB
     Indication: PANCREATIC CARCINOMA
     Dosage: COURSE 1
     Route: 065
     Dates: start: 20110607
  2. ERLOTINIB [Suspect]
     Active Substance: ERLOTINIB
     Dosage: COURSE 2
     Route: 065
     Dates: start: 20110705, end: 20110802
  3. ERLOTINIB [Suspect]
     Active Substance: ERLOTINIB
     Indication: PANCREATIC CARCINOMA
     Dosage: COURSE 1
     Route: 065
     Dates: start: 20110607
  4. VISMODEGIB [Suspect]
     Active Substance: VISMODEGIB
     Dosage: COURSE 2
     Route: 065
     Dates: start: 20110705, end: 20110802

REACTIONS (1)
  - Dermatitis acneiform [Unknown]
